FAERS Safety Report 16652859 (Version 3)
Quarter: 2021Q3

REPORT INFORMATION
  Report Type: Spontaneous
  Country: GB (occurrence: GB)
  Receive Date: 20190731
  Receipt Date: 20210921
  Transmission Date: 20211014
  Serious: Yes (Death, Other)
  Sender: FDA-Public Use
  Company Number: GB-ETHYPHARM-201901537

PATIENT
  Age: 39 Year
  Sex: Male
  Weight: 91 kg

DRUGS (16)
  1. MORPHINE SULFATE. [Suspect]
     Active Substance: MORPHINE SULFATE
     Dosage: UNK (OVERDOSE, MEDICATION ERROR, OFF LABEL USE)
     Route: 065
  2. CODEINE [Suspect]
     Active Substance: CODEINE
     Dosage: UNK
     Route: 065
  3. PARACETAMOL [Concomitant]
     Active Substance: ACETAMINOPHEN
  4. CAFFEINE. [Concomitant]
     Active Substance: CAFFEINE
     Route: 065
  5. ALPRAZOLAM. [Concomitant]
     Active Substance: ALPRAZOLAM
     Route: 065
  6. TRAZODONE [Concomitant]
     Active Substance: TRAZODONE HYDROCHLORIDE
  7. DABIGATRAN [Concomitant]
     Active Substance: DABIGATRAN
     Route: 065
  8. PAPAVERIN [Concomitant]
     Active Substance: PAPAVERINE
  9. DIAZEPAM. [Suspect]
     Active Substance: DIAZEPAM
     Dosage: UNK
     Route: 065
  10. TEGRETOL [Concomitant]
     Active Substance: CARBAMAZEPINE
  11. BUPRENORPHINE. [Suspect]
     Active Substance: BUPRENORPHINE
     Route: 065
  12. NOSCAPINE [Concomitant]
     Active Substance: NOSCAPINE
     Route: 065
  13. PROPRANOLOL [Concomitant]
     Active Substance: PROPRANOLOL HYDROCHLORIDE
  14. BUPRENORPHINE. [Suspect]
     Active Substance: BUPRENORPHINE
     Dosage: UNK
     Route: 065
  15. PREGABALIN. [Suspect]
     Active Substance: PREGABALIN
     Dosage: UNK (MEDICATION ERROR)
     Route: 065
  16. NICOTINE. [Concomitant]
     Active Substance: NICOTINE
     Route: 065

REACTIONS (5)
  - Drug interaction [Fatal]
  - Toxicity to various agents [Fatal]
  - Intentional product misuse [Fatal]
  - Overdose [Fatal]
  - Alcohol interaction [Fatal]

NARRATIVE: CASE EVENT DATE: 20181027
